FAERS Safety Report 4276221-8 (Version None)
Quarter: 2004Q1

REPORT INFORMATION
  Report Type: 
  Country: None (occurrence: None)
  Receive Date: 20040121
  Receipt Date: 20030618
  Transmission Date: 20041129
  Serious: No
  Sender: FDA-Public Use
  Company Number: US-GLAXOSMITHKLINE-A0413285A

PATIENT
  Age: 38 Year
  Sex: Female

DRUGS (8)
  1. ZIAGEN [Suspect]
     Indication: HIV INFECTION
     Route: 048
     Dates: start: 20010101
  2. AGENERASE [Suspect]
     Indication: HIV INFECTION
     Route: 048
     Dates: start: 20010101
  3. COMBIVIR [Suspect]
     Indication: HIV INFECTION
     Route: 048
     Dates: start: 20010101
  4. EPIVIR [Suspect]
     Indication: HIV INFECTION
     Route: 065
     Dates: start: 20010101
  5. TRIZIVIR [Suspect]
     Indication: HIV INFECTION
     Route: 048
     Dates: start: 20010101
  6. UNSPECIFIED MEDICATIONS [Concomitant]
     Indication: HIV INFECTION
  7. DAPSONE [Concomitant]
  8. ASPIRIN [Concomitant]

REACTIONS (3)
  - PRURITUS [None]
  - RASH [None]
  - RASH MACULAR [None]
